FAERS Safety Report 13859790 (Version 1)
Quarter: 2017Q3

REPORT INFORMATION
  Report Type: Spontaneous
  Country: US (occurrence: US)
  Receive Date: 20170811
  Receipt Date: 20170811
  Transmission Date: 20171127
  Serious: Yes (Hospitalization)
  Sender: FDA-Public Use
  Company Number: None

PATIENT
  Age: 79 Year
  Sex: Female

DRUGS (1)
  1. IBRANCE [Suspect]
     Active Substance: PALBOCICLIB
     Dosage: QD FOR 21 DAYS
     Route: 048

REACTIONS (2)
  - Cardiac failure [None]
  - Clostridium difficile infection [None]

NARRATIVE: CASE EVENT DATE: 20170730
